FAERS Safety Report 12524786 (Version 2)
Quarter: 2016Q3

REPORT INFORMATION
  Report Type: Spontaneous
  Country: BR (occurrence: BR)
  Receive Date: 20160704
  Receipt Date: 20160801
  Transmission Date: 20161109
  Serious: No
  Sender: FDA-Public Use
  Company Number: BR-PFIZER INC-2016324105

PATIENT
  Sex: Female

DRUGS (2)
  1. FRONTAL XR [Suspect]
     Active Substance: ALPRAZOLAM
     Dosage: UNK
     Route: 048
  2. FRONTAL [Suspect]
     Active Substance: ALPRAZOLAM
     Dosage: 0.25 MG, 3X/DAY
     Route: 048

REACTIONS (4)
  - Drug ineffective [Unknown]
  - Headache [Unknown]
  - Feeling of despair [Unknown]
  - Dysphonia [Unknown]
